FAERS Safety Report 4509223-4 (Version None)
Quarter: 2004Q4

REPORT INFORMATION
  Report Type: 
  Country: None (occurrence: None)
  Receive Date: 20041123
  Receipt Date: 20040907
  Transmission Date: 20050328
  Serious: Yes (Life-Threatening, Hospitalization, Disabling, Other)
  Sender: FDA-Public Use
  Company Number: US-MERCK-0409USA00448

PATIENT
  Age: 55 Year
  Sex: Female
  Weight: 94 kg

DRUGS (5)
  1. VIOXX [Suspect]
     Indication: ARTHRALGIA
     Route: 048
     Dates: start: 20020626, end: 20020629
  2. VIOXX [Suspect]
     Route: 048
     Dates: start: 20020626, end: 20020629
  3. HYZAAR [Concomitant]
     Indication: HYPERTENSION
     Route: 048
     Dates: start: 20020401
  4. CALCIUM (UNSPECIFIED) AND VITAMIN D (UNSPECIFIED) [Concomitant]
     Indication: PROPHYLAXIS
     Route: 065
  5. PREMPHASE 14/14 [Concomitant]
     Indication: MENOPAUSE
     Route: 048

REACTIONS (6)
  - ACUTE MYOCARDIAL INFARCTION [None]
  - BLOOD POTASSIUM DECREASED [None]
  - GASTROINTESTINAL DISORDER [None]
  - HYPERTENSION [None]
  - THERAPY NON-RESPONDER [None]
  - VOMITING [None]
